FAERS Safety Report 10921074 (Version 1)
Quarter: 2015Q1

REPORT INFORMATION
  Report Type: Spontaneous
  Country: US (occurrence: None)
  Receive Date: 20150313
  Receipt Date: 20150313
  Transmission Date: 20150721
  Serious: Yes (Hospitalization)
  Sender: FDA-Public Use
  Company Number: None

PATIENT
  Age: 23 Year
  Sex: Female
  Weight: 101.15 kg

DRUGS (2)
  1. NICOTROL [Suspect]
     Active Substance: NICOTINE
     Indication: SMOKING CESSATION THERAPY
     Dosage: 1-4 CARTRIDGES
     Dates: start: 20140427, end: 20140912
  2. PRENATAL VITAMINS [Concomitant]
     Active Substance: VITAMINS

REACTIONS (8)
  - Foetal heart rate disorder [None]
  - Floppy infant [None]
  - Neonatal respiratory distress syndrome [None]
  - Gestational diabetes [None]
  - Maternal drugs affecting foetus [None]
  - Meconium abnormal [None]
  - Neonatal hyponatraemia [None]
  - Caesarean section [None]

NARRATIVE: CASE EVENT DATE: 20150304
